FAERS Safety Report 19480370 (Version 1)
Quarter: 2021Q3

REPORT INFORMATION
  Report Type: Other
  Country: IN (occurrence: IN)
  Receive Date: 20210701
  Receipt Date: 20210701
  Transmission Date: 20211014
  Serious: Yes (Other)
  Sender: FDA-Public Use
  Company Number: IN-ALLIED PHARMA-000079

PATIENT
  Age: 41 Year
  Sex: Male

DRUGS (1)
  1. FLUOCINOLONE ACETONIDE. [Suspect]
     Active Substance: FLUOCINOLONE ACETONIDE
     Indication: UVEITIS
     Route: 031

REACTIONS (2)
  - Pseudophakodonesis [Unknown]
  - Blindness transient [Unknown]
